FAERS Safety Report 11983223 (Version 2)
Quarter: 2016Q1

REPORT INFORMATION
  Report Type: Report from Study
  Country: GT (occurrence: GT)
  Receive Date: 20160201
  Receipt Date: 20160217
  Transmission Date: 20160526
  Serious: Yes (Hospitalization, Other)
  Sender: FDA-Public Use
  Company Number: PHHY2016GT012073

PATIENT
  Sex: Female

DRUGS (2)
  1. EXFORGE [Suspect]
     Active Substance: AMLODIPINE BESYLATE\VALSARTAN
     Indication: HYPERTENSION
     Dosage: 0.5 DF, BID (10/320/25 MG)
     Route: 065
  2. EXFORGE [Suspect]
     Active Substance: AMLODIPINE BESYLATE\VALSARTAN
     Dosage: UNK
     Route: 065
     Dates: start: 20160211

REACTIONS (9)
  - Skin ulcer [Unknown]
  - Angiopathy [Unknown]
  - Clostridial infection [Unknown]
  - Decreased immune responsiveness [Unknown]
  - Diabetes mellitus [Unknown]
  - Device related infection [Unknown]
  - Ulcer [Unknown]
  - Off label use [Unknown]
  - Pathogen resistance [Unknown]
